FAERS Safety Report 8936797 (Version 2)
Quarter: 2012Q4

REPORT INFORMATION
  Report Type: 
  Country: US (occurrence: US)
  Receive Date: 20121130
  Receipt Date: 20121210
  Transmission Date: 20130627
  Serious: Yes (Death, Hospitalization, Other)
  Sender: FDA-Public Use
  Company Number: PHEH2012US023486

PATIENT
  Sex: Male
  Weight: 169 kg

DRUGS (4)
  1. CLOZARIL [Suspect]
     Indication: SCHIZOPHRENIA
     Dosage: 6 DF, QD
     Route: 048
     Dates: start: 2006
  2. CLOZARIL [Suspect]
     Dosage: 50 mg, UNK
  3. CLOZARIL [Suspect]
     Dosage: 100 mg, UNK
  4. ABILIFY [Concomitant]
     Indication: AFFECTIVE DISORDER
     Dosage: UNK UKN, QD
     Route: 048
     Dates: start: 20090625

REACTIONS (23)
  - Cardiac disorder [Fatal]
  - Myocarditis [Fatal]
  - Psychotic disorder [Not Recovered/Not Resolved]
  - Restless legs syndrome [Unknown]
  - Gout [Unknown]
  - Musculoskeletal stiffness [Unknown]
  - Dyspnoea [Unknown]
  - Weight increased [Unknown]
  - Hypersomnia [Unknown]
  - Abdominal pain upper [Unknown]
  - Oropharyngeal pain [Unknown]
  - Oral pain [Unknown]
  - Influenza like illness [Unknown]
  - Palpitations [Unknown]
  - Asthenia [Unknown]
  - Increased appetite [Unknown]
  - Pollakiuria [Unknown]
  - Chills [Unknown]
  - Dry mouth [Unknown]
  - Tremor [Unknown]
  - Salivary hypersecretion [Unknown]
  - Hypertension [Unknown]
  - White blood cell count increased [Unknown]
